FAERS Safety Report 7962533-0 (Version None)
Quarter: 2011Q4

REPORT INFORMATION
  Report Type: 
  Country: None (occurrence: None)
  Receive Date: 20111207
  Receipt Date: 20111109
  Transmission Date: 20120403
  Serious: Yes (Hospitalization)
  Sender: FDA-Public Use
  Company Number: JP-GLAXOSMITHKLINE-B0761952A

PATIENT
  Sex: Male

DRUGS (6)
  1. LAMICTAL [Suspect]
     Dosage: 50MG PER DAY
     Route: 048
     Dates: start: 20110915, end: 20110920
  2. SEROQUEL [Concomitant]
     Indication: INSOMNIA
     Dosage: 12.5MG PER DAY
     Route: 048
     Dates: start: 20110915, end: 20110916
  3. LAMICTAL [Suspect]
     Indication: BIPOLAR II DISORDER
     Dosage: 25MG PER DAY
     Route: 048
     Dates: start: 20110901, end: 20110914
  4. LENDORMIN [Concomitant]
     Dosage: .25MG PER DAY
     Route: 048
     Dates: start: 20110901, end: 20110907
  5. LENDORMIN [Concomitant]
     Dosage: .125MG PER DAY
     Route: 048
     Dates: start: 20110908, end: 20110926
  6. MIRADOL [Concomitant]
     Dosage: 150MG PER DAY
     Route: 048
     Dates: start: 20110901

REACTIONS (7)
  - ENANTHEMA [None]
  - RASH [None]
  - LIP SWELLING [None]
  - PYREXIA [None]
  - DRUG RASH WITH EOSINOPHILIA AND SYSTEMIC SYMPTOMS [None]
  - DRUG ERUPTION [None]
  - STOMATITIS [None]
